FAERS Safety Report 8288176-X (Version None)
Quarter: 2012Q2

REPORT INFORMATION
  Report Type: 
  Country: None (occurrence: None)
  Receive Date: 20120416
  Receipt Date: 20120412
  Transmission Date: 20120825
  Serious: No
  Sender: FDA-Public Use
  Company Number: US-BAYER-2012-036425

PATIENT
  Age: 46 Year
  Sex: Male

DRUGS (1)
  1. GADAVIST [Suspect]
     Indication: NUCLEAR MAGNETIC RESONANCE IMAGING BRAIN
     Dosage: 9 ML, UNK
     Route: 042
     Dates: start: 20120412, end: 20120412

REACTIONS (4)
  - URTICARIA [None]
  - HEART RATE INCREASED [None]
  - ERYTHEMA [None]
  - SWELLING FACE [None]
